FAERS Safety Report 4898872-X (Version None)
Quarter: 2006Q1

REPORT INFORMATION
  Report Type: 
  Country: None (occurrence: None)
  Receive Date: 20060104
  Receipt Date: 20050926
  Transmission Date: 20060701
  Serious: Yes (Disabling)
  Sender: FDA-Public Use
  Company Number: A03200503075

PATIENT
  Age: 55 Year
  Sex: Female

DRUGS (8)
  1. ELOXATIN [Suspect]
     Indication: COLORECTAL CANCER STAGE IV
     Dosage: INTRAVENOUS NOS
     Route: 042
     Dates: start: 20050822, end: 20050822
  2. ELOXATIN [Suspect]
     Indication: METASTASES TO LIVER
     Dosage: INTRAVENOUS NOS
     Route: 042
     Dates: start: 20050822, end: 20050822
  3. FLUOROURACIL [Suspect]
     Indication: COLORECTAL CANCER STAGE IV
     Dosage: INTRAVENOUS NOS
     Route: 042
     Dates: start: 20050822, end: 20050822
  4. FLUOROURACIL [Suspect]
     Indication: METASTASES TO LIVER
     Dosage: INTRAVENOUS NOS
     Route: 042
     Dates: start: 20050822, end: 20050822
  5. LEUCOVORIN CALCIUM [Suspect]
     Indication: COLORECTAL CANCER STAGE IV
     Dosage: INTRAVENOUS NOS
     Route: 042
     Dates: start: 20050822, end: 20050822
  6. LEUCOVORIN CALCIUM [Suspect]
     Indication: METASTASES TO LIVER
     Dosage: INTRAVENOUS NOS
     Route: 042
     Dates: start: 20050822, end: 20050822
  7. AVASTIN [Suspect]
     Indication: COLORECTAL CANCER STAGE IV
     Dosage: INTRAVENOUS NOS
     Route: 042
     Dates: start: 20050822, end: 20050822
  8. AVASTIN [Suspect]
     Indication: METASTASES TO LIVER
     Dosage: INTRAVENOUS NOS
     Route: 042
     Dates: start: 20050822, end: 20050822

REACTIONS (1)
  - NEUROPATHY [None]
